FAERS Safety Report 5869637-7 (Version None)
Quarter: 2008Q3

REPORT INFORMATION
  Report Type: 
  Country: None (occurrence: None)
  Receive Date: 20080902
  Receipt Date: 20080819
  Transmission Date: 20090109
  Serious: No
  Sender: FDA-Public Use
  Company Number: US024422

PATIENT

DRUGS (3)
  1. FENTORA [Suspect]
     Indication: BACK PAIN
     Dosage: 200 UG BUCCAL
     Route: 002
  2. ACTIQ [Concomitant]
  3. PERCOCET [Concomitant]

REACTIONS (2)
  - DRUG PRESCRIBING ERROR [None]
  - MEDICATION ERROR [None]
